FAERS Safety Report 14363294 (Version 4)
Quarter: 2019Q2

REPORT INFORMATION
  Report Type: Spontaneous
  Country: US (occurrence: US)
  Receive Date: 20180108
  Receipt Date: 20190624
  Transmission Date: 20190711
  Serious: Yes (Hospitalization, Other)
  Sender: FDA-Public Use
  Company Number: US-PFIZER INC-2018005430

PATIENT
  Age: 66 Year
  Sex: Male
  Weight: 72.56 kg

DRUGS (10)
  1. CICLOSPORIN [Concomitant]
     Active Substance: CYCLOSPORINE
     Dosage: 50 MG, 2X/DAY
  2. RAPAMUNE [Concomitant]
     Active Substance: SIROLIMUS
     Indication: LIVER TRANSPLANT
     Dosage: 1 MG, 1X/DAY
     Dates: start: 2014
  3. CICLOSPORIN [Concomitant]
     Active Substance: CYCLOSPORINE
     Dosage: UNK
     Dates: end: 201709
  4. RAPAMUNE [Concomitant]
     Active Substance: SIROLIMUS
     Dosage: 1 MG, 1X/DAY
     Dates: start: 201601, end: 201709
  5. RAPAMUNE [Concomitant]
     Active Substance: SIROLIMUS
     Dosage: UNK
     Dates: start: 201403
  6. CEFEPIME HCL [Suspect]
     Active Substance: CEFEPIME HYDROCHLORIDE
     Indication: PSEUDOMONAS INFECTION
  7. CICLOSPORIN [Concomitant]
     Active Substance: CYCLOSPORINE
     Indication: IMMUNOSUPPRESSION
     Dosage: 75 MG, 2X/DAY
     Route: 048
     Dates: start: 201709
  8. CEFEPIME HCL [Suspect]
     Active Substance: CEFEPIME HYDROCHLORIDE
     Indication: PNEUMONIA
     Dosage: 2 G, 2X/DAY
     Dates: start: 20170821, end: 20170909
  9. TACROLIMUS. [Concomitant]
     Active Substance: TACROLIMUS
     Indication: LIVER TRANSPLANT
     Dosage: UNK
     Dates: end: 201601
  10. TACROLIMUS. [Concomitant]
     Active Substance: TACROLIMUS
     Dosage: UNK
     Dates: start: 2014, end: 201512

REACTIONS (10)
  - Gait inability [Recovered/Resolved]
  - Protein urine present [Not Recovered/Not Resolved]
  - Drug hypersensitivity [Recovered/Resolved]
  - Necrosis [Recovered/Resolved]
  - Nephritis [Recovered/Resolved]
  - Glomerular filtration rate decreased [Recovering/Resolving]
  - Speech disorder [Recovered/Resolved]
  - Encephalopathy [Recovered/Resolved]
  - Renal impairment [Recovering/Resolving]
  - Fatigue [Recovered/Resolved]

NARRATIVE: CASE EVENT DATE: 201708
